FAERS Safety Report 10187382 (Version 2)
Quarter: 2014Q3

REPORT INFORMATION
  Report Type: Spontaneous
  Country: US (occurrence: None)
  Receive Date: 20140520
  Receipt Date: 20140710
  Transmission Date: 20150326
  Serious: Yes (Hospitalization)
  Sender: FDA-Public Use
  Company Number: AUR-APL-2014-05749

PATIENT
  Age: 69 Year
  Sex: Male

DRUGS (4)
  1. MIRTAZAPINE. [Suspect]
     Active Substance: MIRTAZAPINE
     Indication: INSOMNIA
  2. MULTIVITAMINS (ASCORBIC ACID, ERCOCALCIFEROL, FOLIC ACID, NICOTINAMIDE, PANTHENOL, RETINOL, RIBOFLAVIN, THIAMINE HYDROCHLORIDE) [Concomitant]
  3. PROPAFENONE. [Suspect]
     Active Substance: PROPAFENONE
     Indication: ATRIAL FIBRILLATION
  4. ASPIRIN (ACTYLSALICYLIC ACID) [Concomitant]

REACTIONS (13)
  - Drug interaction [None]
  - Encephalopathy [None]
  - Sedation [None]
  - Toxicity to various agents [None]
  - Electrocardiogram QT prolonged [None]
  - Bundle branch block right [None]
  - Electrocardiogram QRS complex prolonged [None]
  - Bradycardia [None]
  - Dyskinesia [None]
  - Convulsion [None]
  - Off label use [None]
  - Cardiotoxicity [None]
  - Neurotoxicity [None]
